FAERS Safety Report 18453264 (Version 1)
Quarter: 2020Q4

REPORT INFORMATION
  Report Type: Spontaneous
  Country: US (occurrence: US)
  Receive Date: 20201102
  Receipt Date: 20201102
  Transmission Date: 20210114
  Serious: Yes (Death)
  Sender: FDA-Public Use
  Company Number: None

PATIENT
  Age: 76 Year
  Sex: Female

DRUGS (10)
  1. LISINOPRIL. [Concomitant]
     Active Substance: LISINOPRIL
  2. DICYCLOMINE [Concomitant]
     Active Substance: DICYCLOMINE HYDROCHLORIDE
  3. LETRAZOLE [Concomitant]
     Active Substance: LETROZOLE
  4. LOSARTAN. [Concomitant]
     Active Substance: LOSARTAN
  5. LIDOCAINE. [Concomitant]
     Active Substance: LIDOCAINE
  6. AFINITOR [Concomitant]
     Active Substance: EVEROLIMUS
  7. BENZONATATE. [Concomitant]
     Active Substance: BENZONATATE
  8. DEXAMETHASON [Concomitant]
     Active Substance: DEXAMETHASONE
  9. EVEROLIMUS,7.5MG/MG [Suspect]
     Active Substance: EVEROLIMUS
     Indication: UTERINE CANCER
     Route: 048
     Dates: start: 20200912
  10. LEVOTHYROXIN [Concomitant]
     Active Substance: LEVOTHYROXINE

REACTIONS (1)
  - Death [None]

NARRATIVE: CASE EVENT DATE: 20201021
